FAERS Safety Report 14950717 (Version 3)
Quarter: 2018Q3

REPORT INFORMATION
  Report Type: Spontaneous
  Country: JP (occurrence: JP)
  Receive Date: 20180530
  Receipt Date: 20180927
  Transmission Date: 20181010
  Serious: Yes (Hospitalization)
  Sender: FDA-Public Use
  Company Number: JP-FERRINGPH-2018FE02474

PATIENT

DRUGS (7)
  1. MENOPUR [Suspect]
     Active Substance: FOLLITROPIN\LUTEINIZING HORMONE
     Indication: OVULATION INDUCTION
     Dosage: 75 IU, DAILY
     Route: 030
     Dates: start: 20170125, end: 20170128
  2. MENOPUR [Suspect]
     Active Substance: FOLLITROPIN\LUTEINIZING HORMONE
     Dosage: 150 IU, DAILY
     Route: 030
     Dates: start: 20170125, end: 20170128
  3. CABASER [Suspect]
     Active Substance: CABERGOLINE
     Dosage: 0.25 MG, DAILY
     Route: 048
     Dates: start: 20170213, end: 20170213
  4. LUTINUS [Suspect]
     Active Substance: PROGESTERONE
     Indication: IN VITRO FERTILISATION
     Dosage: 100 MG, 3 TIMES DAILY
     Route: 067
     Dates: start: 20170220, end: 20170228
  5. DUPHASTON [Suspect]
     Active Substance: DYDROGESTERONE
     Indication: IN VITRO FERTILISATION
     Dosage: 5 MG, 3 TIMES DAILY
     Route: 048
     Dates: start: 20170224, end: 20170228
  6. ESTRANA [Suspect]
     Active Substance: ESTRADIOL
     Indication: IN VITRO FERTILISATION
     Dosage: 0.72 MG, 2 TIMES DAILY
     Route: 062
     Dates: start: 20170213, end: 20170228
  7. CABASER [Suspect]
     Active Substance: CABERGOLINE
     Indication: HYPERPROLACTINAEMIA
     Dosage: 0.25 MG, DAILY
     Route: 048
     Dates: start: 20170220, end: 20170220

REACTIONS (1)
  - Intracranial artery dissection [Unknown]

NARRATIVE: CASE EVENT DATE: 20170301
